FAERS Safety Report 8055002-3 (Version None)
Quarter: 2012Q1

REPORT INFORMATION
  Report Type: 
  Country: None (occurrence: None)
  Receive Date: 20120119
  Receipt Date: 20120116
  Transmission Date: 20120608
  Serious: Yes (Hospitalization)
  Sender: FDA-Public Use
  Company Number: IT-PFIZER INC-2012011938

PATIENT
  Age: 85 Year
  Sex: Female

DRUGS (9)
  1. TICLID [Concomitant]
  2. CLARITHROMYCIN [Suspect]
     Indication: BRONCHOPNEUMONIA
     Dosage: 1000 MG DAILY
     Route: 048
     Dates: start: 20110824, end: 20110825
  3. CARVEDILOL [Concomitant]
  4. SPIRONOLACTONE [Concomitant]
  5. CEFTRIAXONE SODIUM [Suspect]
     Indication: BRONCHOPNEUMONIA
     Dosage: 1 UNIT DOSE DAILY
     Route: 042
     Dates: start: 20110813, end: 20110825
  6. ATORVASTATIN [Concomitant]
  7. OMEPRAZOLE [Concomitant]
  8. PIPERACILLIN AND TAZOBACTAM [Suspect]
     Indication: BRONCHOPNEUMONIA
     Dosage: 1 UNIT DOSE DAILY
     Route: 042
     Dates: start: 20110813, end: 20110825
  9. TELMISARTAN [Concomitant]

REACTIONS (2)
  - MEGACOLON [None]
  - CLOSTRIDIUM COLITIS [None]
